FAERS Safety Report 12971314 (Version 1)
Quarter: 2016Q4

REPORT INFORMATION
  Report Type: Spontaneous
  Country: US (occurrence: US)
  Receive Date: 20161123
  Receipt Date: 20161123
  Transmission Date: 20170207
  Serious: No
  Sender: FDA-Public Use
  Company Number: US-JAZZ-2016-US-019603

PATIENT
  Sex: Female

DRUGS (20)
  1. XYREM [Suspect]
     Active Substance: SODIUM OXYBATE
     Indication: CATAPLEXY
     Dosage: DOSE ADJUSTMENTS
     Route: 048
     Dates: start: 201011, end: 201305
  2. XYREM [Suspect]
     Active Substance: SODIUM OXYBATE
     Dosage: 3 G, SECOND DOSE
     Route: 048
     Dates: start: 201605
  3. BUTALBITAL APAP CAFFEINE [Concomitant]
  4. NORTRIPTYLINE HCL [Concomitant]
     Active Substance: NORTRIPTYLINE HYDROCHLORIDE
  5. XYREM [Suspect]
     Active Substance: SODIUM OXYBATE
     Dosage: 3.5 G, FIRST DOSE
     Route: 048
     Dates: start: 201305, end: 2015
  6. IMMUNE GLOBULIN [Concomitant]
     Active Substance: HUMAN IMMUNOGLOBULIN G
  7. ADDERALL XR [Concomitant]
     Active Substance: AMPHETAMINE ASPARTATE\AMPHETAMINE SULFATE\DEXTROAMPHETAMINE SACCHARATE\DEXTROAMPHETAMINE SULFATE
  8. VISTARIL [Concomitant]
     Active Substance: HYDROXYZINE PAMOATE
  9. XANAX XR [Concomitant]
     Active Substance: ALPRAZOLAM
  10. XYREM [Suspect]
     Active Substance: SODIUM OXYBATE
     Dosage: 3.5 G, FIRST DOSE
     Route: 048
     Dates: start: 201605
  11. OXYCODONE HCL CR [Concomitant]
  12. NEURONTIN [Concomitant]
     Active Substance: GABAPENTIN
  13. PLAQUENIL                          /00072602/ [Concomitant]
     Active Substance: HYDROXYCHLOROQUINE DIPHOSPHATE
  14. SINGULAIR [Concomitant]
     Active Substance: MONTELUKAST SODIUM
  15. ZYRTEC [Concomitant]
     Active Substance: CETIRIZINE HYDROCHLORIDE
  16. NUVIGIL [Concomitant]
     Active Substance: ARMODAFINIL
  17. XYREM [Suspect]
     Active Substance: SODIUM OXYBATE
     Indication: NARCOLEPSY
     Dosage: 0.5 G, BID
     Route: 048
     Dates: start: 201011, end: 201011
  18. AMBIEN CR [Concomitant]
     Active Substance: ZOLPIDEM TARTRATE
  19. XYREM [Suspect]
     Active Substance: SODIUM OXYBATE
     Dosage: 3 G, SECOND DOSE
     Route: 048
     Dates: start: 201305, end: 2015
  20. DARVOCET-N 100 [Concomitant]
     Active Substance: ACETAMINOPHEN\PROPOXYPHENE NAPSYLATE

REACTIONS (1)
  - Infection [Recovered/Resolved]
